FAERS Safety Report 9394876 (Version 2)
Quarter: 2013Q3

REPORT INFORMATION
  Report Type: Spontaneous
  Country: US (occurrence: US)
  Receive Date: 20130711
  Receipt Date: 20130815
  Transmission Date: 20140515
  Serious: Yes (Other)
  Sender: FDA-Public Use
  Company Number: US-PFIZER INC-2013203114

PATIENT
  Age: 64 Year
  Sex: Female

DRUGS (3)
  1. SUTENT [Suspect]
     Indication: PANCREATIC CARCINOMA
     Dosage: 25 MG, CYCLIC (DAILY, 4 WEEKS ON, 2 WEEKS OFF)
     Route: 048
     Dates: start: 20110308
  2. SUTENT [Suspect]
     Indication: CONNECTIVE TISSUE NEOPLASM
  3. SUTENT [Suspect]
     Indication: SOFT TISSUE CANCER

REACTIONS (3)
  - Atrophic glossitis [Unknown]
  - Cognitive disorder [Unknown]
  - Hot flush [Unknown]
